FAERS Safety Report 9133192 (Version 1)
Quarter: 2013Q1

REPORT INFORMATION
  Report Type: Spontaneous
  Country: CN (occurrence: CN)
  Receive Date: 20130301
  Receipt Date: 20130301
  Transmission Date: 20140127
  Serious: Yes (Other)
  Sender: FDA-Public Use
  Company Number: CN-ASTRAZENECA-2013SE11820

PATIENT
  Age: 47 Year
  Sex: Female
  Weight: 60 kg

DRUGS (6)
  1. BETALOC ZOK [Suspect]
     Indication: HYPERTENSION
     Route: 048
     Dates: start: 20111101, end: 20130217
  2. BETALOC ZOK [Suspect]
     Indication: HYPERTENSION
     Route: 048
     Dates: start: 2012
  3. BETALOC ZOK [Suspect]
     Indication: HYPERTENSION
     Route: 048
     Dates: start: 20130216, end: 20130219
  4. BETALOC [Suspect]
     Indication: HYPERTENSION
     Route: 048
     Dates: start: 2007
  5. VALSARTAN [Suspect]
     Indication: HYPERTENSION
     Route: 065
     Dates: start: 2007
  6. AMLODIPINE [Suspect]
     Indication: HYPERTENSION
     Route: 065

REACTIONS (3)
  - Pyrexia [Recovering/Resolving]
  - Dyspnoea [Recovering/Resolving]
  - Asthma [Unknown]
